FAERS Safety Report 10650266 (Version 3)
Quarter: 2015Q2

REPORT INFORMATION
  Report Type: Spontaneous
  Country: FR (occurrence: FR)
  Receive Date: 20141212
  Receipt Date: 20150427
  Transmission Date: 20150821
  Serious: Yes (Hospitalization, Other)
  Sender: FDA-Public Use
  Company Number: FR-GLAXOSMITHKLINE-FR2014GSK033303

PATIENT
  Age: 29 Year
  Sex: Female

DRUGS (6)
  1. KALETRA [Concomitant]
     Active Substance: LOPINAVIR\RITONAVIR
     Indication: PRODUCT USED FOR UNKNOWN INDICATION
     Dosage: UNK
     Dates: start: 20141021
  2. PREZISTA [Suspect]
     Active Substance: DARUNAVIR ETHANOLATE
     Dosage: 600 MG, BID
     Route: 048
     Dates: start: 20140908, end: 20141021
  3. NORVIR [Suspect]
     Active Substance: RITONAVIR
     Indication: HIV INFECTION
     Dosage: 100 MG, QD
     Route: 048
     Dates: start: 20140127, end: 20140908
  4. KIVEXA [Suspect]
     Active Substance: ABACAVIR SULFATE\LAMIVUDINE
     Indication: HIV INFECTION
     Dosage: 1 DF, QD
     Route: 048
     Dates: start: 20140127
  5. NORVIR [Suspect]
     Active Substance: RITONAVIR
     Dosage: 100 MG, BID
     Route: 048
     Dates: start: 20140908, end: 20141021
  6. PREZISTA [Suspect]
     Active Substance: DARUNAVIR ETHANOLATE
     Indication: HIV INFECTION
     Dosage: 800 MG, QD
     Route: 048
     Dates: start: 20140127, end: 20140908

REACTIONS (6)
  - Exposure during pregnancy [Unknown]
  - Cholestasis of pregnancy [Recovered/Resolved]
  - Condition aggravated [Recovered/Resolved]
  - Premature rupture of membranes [Unknown]
  - Live birth [Unknown]
  - Foetal disorder [Unknown]

NARRATIVE: CASE EVENT DATE: 20140318
